FAERS Safety Report 5232617-9 (Version None)
Quarter: 2007Q1

REPORT INFORMATION
  Report Type: 
  Country: None (occurrence: None)
  Receive Date: 20070205
  Receipt Date: 20070131
  Transmission Date: 20070707
  Serious: Yes (Other)
  Sender: FDA-Public Use
  Company Number: 2006SP008272

PATIENT
  Age: 54 Year
  Sex: Female
  Weight: 61.2356 kg

DRUGS (2)
  1. PEG-INTRON [Suspect]
     Indication: HEPATITIS C
     Dosage: 120 MCG;
     Dates: start: 20030301, end: 20040201
  2. REBETOL [Suspect]
     Indication: HEPATITIS C
     Dosage: 1000 MG; QD; PO
     Route: 048
     Dates: start: 20030301, end: 20040201

REACTIONS (8)
  - BLOOD CHOLESTEROL INCREASED [None]
  - DEHYDRATION [None]
  - FIBROMYALGIA [None]
  - GINGIVAL BLEEDING [None]
  - IRRITABLE BOWEL SYNDROME [None]
  - OVERDOSE [None]
  - TOOTH LOSS [None]
  - WEIGHT DECREASED [None]
